FAERS Safety Report 4607318-8 (Version None)
Quarter: 2005Q1

REPORT INFORMATION
  Report Type: 
  Country: None (occurrence: None)
  Receive Date: 20050311
  Receipt Date: 20050311
  Transmission Date: 20050727
  Serious: Yes (Disabling, Other)
  Sender: FDA-Public Use
  Company Number: None

PATIENT
  Age: 50 Year
  Sex: Female
  Weight: 89.8122 kg

DRUGS (8)
  1. LIPITOR [Suspect]
     Indication: HYPERLIPIDAEMIA
     Dosage: 1 DAILY PO
     Route: 048
     Dates: end: 20041020
  2. LIPITOR [Suspect]
     Indication: METABOLIC SYNDROME
     Dosage: 1 DAILY PO
     Route: 048
     Dates: end: 20041020
  3. LIPITOR [Suspect]
     Indication: HYPERLIPIDAEMIA
     Dosage: 1 DAILY PO
     Route: 048
     Dates: start: 20041101, end: 20041128
  4. LIPITOR [Suspect]
     Indication: METABOLIC SYNDROME
     Dosage: 1 DAILY PO
     Route: 048
     Dates: start: 20041101, end: 20041128
  5. METFORMIN HCL [Concomitant]
  6. ALTACE [Concomitant]
  7. ACTOS [Concomitant]
  8. AVIAUE [Concomitant]

REACTIONS (2)
  - ASTHENIA [None]
  - MYALGIA [None]
